FAERS Safety Report 7485890-0 (Version None)
Quarter: 2011Q2

REPORT INFORMATION
  Report Type: 
  Country: None (occurrence: None)
  Receive Date: 20110517
  Receipt Date: 20110120
  Transmission Date: 20111010
  Serious: Yes (Hospitalization, Other)
  Sender: FDA-Public Use
  Company Number: US-BAYER-2011-022977

PATIENT
  Age: 27 Year
  Sex: Female
  Weight: 61.224 kg

DRUGS (8)
  1. NEXIUM [Concomitant]
     Dosage: UNK
     Dates: start: 20081001
  2. HYDROCODONE BITARTRATE AND ACETAMINOPHEN [Concomitant]
     Dosage: UNK
     Dates: start: 20080101
  3. IBUPROFEN [Concomitant]
  4. VALTREX [Concomitant]
     Dosage: UNK
     Dates: start: 20070101, end: 20100101
  5. ASCORBIC ACID [Concomitant]
     Dosage: UNK
  6. DICYCLOMINE [Concomitant]
     Dosage: UNK
     Dates: start: 20081101
  7. DOXYCYCLINE [Concomitant]
     Dosage: UNK
     Dates: start: 20080101
  8. YAZ [Suspect]
     Indication: CONTRACEPTION
     Dosage: UNK
     Dates: start: 20070601, end: 20090801

REACTIONS (7)
  - GALLBLADDER NON-FUNCTIONING [None]
  - ABDOMINAL DISTENSION [None]
  - BILIARY DYSKINESIA [None]
  - CHOLECYSTITIS CHRONIC [None]
  - NAUSEA [None]
  - BILIARY COLIC [None]
  - ABDOMINAL PAIN UPPER [None]
